FAERS Safety Report 4478803-7 (Version None)
Quarter: 2004Q4

REPORT INFORMATION
  Report Type: 
  Country: None (occurrence: None)
  Receive Date: 20041019
  Receipt Date: 20040820
  Transmission Date: 20050328
  Serious: Yes (Death, Hospitalization)
  Sender: FDA-Public Use
  Company Number: PHNR2004AU01353

PATIENT
  Age: 60 Year
  Sex: Female

DRUGS (10)
  1. ZOMETA [Suspect]
     Indication: HYPERCALCAEMIA OF MALIGNANCY
     Dosage: 4 MG, QW
     Dates: start: 20040813, end: 20040820
  2. ZOMETA [Suspect]
     Dosage: 8 MG, QW
     Dates: start: 20040827, end: 20040917
  3. DOLASETRON [Concomitant]
  4. DEXAMETHASONE [Concomitant]
  5. HYDROCORTISONE [Concomitant]
  6. CARBOPLATIN [Concomitant]
  7. PACLITAXEL [Concomitant]
  8. DOCETAXEL [Concomitant]
  9. MIRTAZAPINE [Concomitant]
  10. WARFARIN SODIUM [Concomitant]

REACTIONS (2)
  - BLOOD CALCIUM INCREASED [None]
  - DEATH [None]
